FAERS Safety Report 17662843 (Version 1)
Quarter: 2020Q2

REPORT INFORMATION
  Report Type: Report from Study
  Country: BR (occurrence: BR)
  Receive Date: 20200413
  Receipt Date: 20200413
  Transmission Date: 20200713
  Serious: Yes (Other)
  Sender: FDA-Public Use
  Company Number: NVSC2020BR097268

PATIENT
  Sex: Female

DRUGS (4)
  1. HIGROTON [Suspect]
     Active Substance: CHLORTHALIDONE
     Indication: DYSURIA
     Dosage: 25 MG
     Route: 065
  2. AMOXICILLIN. [Suspect]
     Active Substance: AMOXICILLIN
     Indication: ERYSIPELAS
     Route: 065
  3. DIOVAN [Suspect]
     Active Substance: VALSARTAN
     Indication: BLOOD PRESSURE ABNORMAL
     Dosage: 320 MG
     Route: 065
  4. SPIRONOLACTONE. [Concomitant]
     Active Substance: SPIRONOLACTONE
     Indication: PRODUCT USED FOR UNKNOWN INDICATION
     Dosage: 50 MG
     Route: 065

REACTIONS (18)
  - Movement disorder [Not Recovered/Not Resolved]
  - Skin plaque [Unknown]
  - Cartilage injury [Not Recovered/Not Resolved]
  - Blood pressure increased [Unknown]
  - Drug hypersensitivity [Unknown]
  - Erysipelas [Unknown]
  - Dementia [Unknown]
  - Osteoarthritis [Not Recovered/Not Resolved]
  - Cerebrovascular accident [Unknown]
  - Malaise [Unknown]
  - Arthralgia [Unknown]
  - Product use in unapproved indication [Unknown]
  - Skin exfoliation [Unknown]
  - Erythema [Unknown]
  - Pruritus [Unknown]
  - Transient ischaemic attack [Unknown]
  - Asthenia [Unknown]
  - Pain [Not Recovered/Not Resolved]

NARRATIVE: CASE EVENT DATE: 2019
